FAERS Safety Report 5558164-2 (Version None)
Quarter: 2007Q4

REPORT INFORMATION
  Report Type: 
  Country: None (occurrence: None)
  Receive Date: 20071214
  Receipt Date: 20071206
  Transmission Date: 20080405
  Serious: Yes (Hospitalization, Other)
  Sender: FDA-Public Use
  Company Number: US-PFIZER INC-2007087371

PATIENT
  Sex: Female
  Weight: 59.09 kg

DRUGS (4)
  1. LIPITOR [Suspect]
     Indication: BLOOD CHOLESTEROL INCREASED
     Route: 048
  2. VALSARTAN [Concomitant]
  3. AMLODIPINE [Concomitant]
  4. FOSAMAX [Concomitant]

REACTIONS (1)
  - SKIN CANCER [None]
